FAERS Safety Report 7201976-X (Version None)
Quarter: 2010Q4

REPORT INFORMATION
  Report Type: 
  Country: None (occurrence: None)
  Receive Date: 20101229
  Receipt Date: 20101221
  Transmission Date: 20110411
  Serious: Yes (Other)
  Sender: FDA-Public Use
  Company Number: US-AMGEN-USASP2010003909

PATIENT

DRUGS (7)
  1. PROCRIT [Suspect]
     Indication: RENAL FAILURE CHRONIC
     Dosage: 80000 IU, Q2WK
     Dates: start: 20100901
  2. PROCRIT [Suspect]
     Dosage: 72000 IU, Q2WK
  3. PROCRIT [Suspect]
     Dosage: 80000 IU, Q2WK
     Dates: start: 20050101
  4. SENSIPAR [Suspect]
     Indication: HYPERPARATHYROIDISM SECONDARY
     Dosage: UNK
  5. LOPRESSOR [Concomitant]
     Indication: HYPERTENSION
     Dosage: 100 MG, BID
  6. LASIX [Concomitant]
     Indication: HYPERTENSION
     Dosage: 40 MG, QD
  7. FOLIC ACID [Concomitant]
     Indication: ANAEMIA
     Dosage: 5 MG, QD

REACTIONS (2)
  - HAEMOGLOBIN DECREASED [None]
  - THERAPEUTIC RESPONSE DECREASED [None]
